FAERS Safety Report 5712258-7 (Version None)
Quarter: 2008Q2

REPORT INFORMATION
  Report Type: 
  Country: None (occurrence: None)
  Receive Date: 20080418
  Receipt Date: 20080407
  Transmission Date: 20081010
  Serious: No
  Sender: FDA-Public Use
  Company Number: 002#2#2008-00200

PATIENT
  Age: 50 Year
  Sex: Male
  Weight: 83.9154 kg

DRUGS (5)
  1. NEUPRO [Suspect]
     Dosage: 4MG/24H,L IN 1 D, TRANSDERMAL;  6MG/24H,1 IN 1 D,TRANSDERMAL
     Route: 062
     Dates: start: 20071001, end: 20070101
  2. STALEVO 100 [Concomitant]
  3. AMANTADINE HCL [Concomitant]
  4. PARCOPA [Concomitant]
  5. AVALIDE [Concomitant]

REACTIONS (2)
  - DRUG INEFFECTIVE [None]
  - PHARMACEUTICAL PRODUCT COMPLAINT [None]
